FAERS Safety Report 14170052 (Version 2)
Quarter: 2019Q1

REPORT INFORMATION
  Report Type: Spontaneous
  Country: CZ (occurrence: CZ)
  Receive Date: 20171108
  Receipt Date: 20190201
  Transmission Date: 20190417
  Serious: Yes (Death, Hospitalization, Other)
  Sender: FDA-Public Use
  Company Number: PHHY2017CZ153228

PATIENT
  Sex: Male

DRUGS (5)
  1. AMOXICILLIN + CLAVULANATE POTASSIUM [Suspect]
     Active Substance: AMOXICILLIN\CLAVULANATE POTASSIUM
     Indication: NOSOCOMIAL INFECTION
  2. AMLODIPINE [Concomitant]
     Active Substance: AMLODIPINE BESYLATE
     Indication: PRODUCT USED FOR UNKNOWN INDICATION
     Route: 065
  3. OMEPRAZOL [Concomitant]
     Active Substance: OMEPRAZOLE
     Indication: PRODUCT USED FOR UNKNOWN INDICATION
     Route: 048
  4. NADROPARIN [Concomitant]
     Active Substance: NADROPARIN
     Indication: PRODUCT USED FOR UNKNOWN INDICATION
     Route: 065
  5. AMOXICILLIN + CLAVULANATE POTASSIUM [Suspect]
     Active Substance: AMOXICILLIN\CLAVULANATE POTASSIUM
     Indication: PNEUMONIA
     Route: 065

REACTIONS (11)
  - Escherichia infection [Unknown]
  - Candida infection [Unknown]
  - Morganella infection [Unknown]
  - Cachexia [Unknown]
  - Toxic epidermal necrolysis [Not Recovered/Not Resolved]
  - Dermatitis allergic [Unknown]
  - Sepsis [Fatal]
  - Klebsiella infection [Unknown]
  - Pneumonia pseudomonal [Unknown]
  - Chorioretinitis [Unknown]
  - Bacterial infection [Unknown]
